FAERS Safety Report 5545313-5 (Version None)
Quarter: 2007Q4

REPORT INFORMATION
  Report Type: 
  Country: None (occurrence: None)
  Receive Date: 20071205
  Receipt Date: 20071205
  Transmission Date: 20080405
  Serious: Yes (Disabling, Other)
  Sender: FDA-Public Use
  Company Number: None

PATIENT
  Age: 53 Year
  Sex: Female
  Weight: 72.5755 kg

DRUGS (2)
  1. CLEANSING + INFECTION BENZALKONIUM CHLORIDE 0.13% CVS PHARMACY / INVER [Suspect]
     Indication: WOUND
     Dosage: SMALL AMOUNT 1X-2X DAY TOP
     Route: 061
     Dates: start: 20071119, end: 20071127
  2. CVS BRAND CLEANSING AND INFECTION PROTECTION FOAM [Concomitant]

REACTIONS (5)
  - APPLICATION SITE IRRITATION [None]
  - DRUG HYPERSENSITIVITY [None]
  - PHARMACEUTICAL PRODUCT COMPLAINT [None]
  - SCAR [None]
  - URTICARIA [None]
